FAERS Safety Report 9496405 (Version 1)
Quarter: 2013Q3

REPORT INFORMATION
  Report Type: Spontaneous
  Country: CO (occurrence: CO)
  Receive Date: 20130904
  Receipt Date: 20130904
  Transmission Date: 20140515
  Serious: Yes (Other)
  Sender: FDA-Public Use
  Company Number: CO-JNJFOC-20130816051

PATIENT
  Age: 52 Year
  Sex: Female

DRUGS (1)
  1. TOPAMAC [Suspect]
     Indication: MIGRAINE
     Route: 048
     Dates: start: 20121010, end: 20130422

REACTIONS (1)
  - Renal disorder [Unknown]
